FAERS Safety Report 19415665 (Version 4)
Quarter: 2025Q1

REPORT INFORMATION
  Report Type: Spontaneous
  Country: DE (occurrence: DE)
  Receive Date: 20210614
  Receipt Date: 20250110
  Transmission Date: 20250409
  Serious: Yes (Death)
  Sender: NOVARTIS
  Company Number: NVSC2021DE095639

PATIENT

DRUGS (15)
  1. PANOBINOSTAT [Suspect]
     Active Substance: PANOBINOSTAT
     Indication: T-cell prolymphocytic leukaemia
     Route: 065
  2. MYCOPHENOLATE MOFETIL [Suspect]
     Active Substance: MYCOPHENOLATE MOFETIL
     Indication: Prophylaxis against graft versus host disease
     Dosage: UNK UNK, QD (DAILY FOR 28 DAYS)
     Route: 065
  3. FLUDARABINE PHOSPHATE [Suspect]
     Active Substance: FLUDARABINE PHOSPHATE
     Indication: Allogenic stem cell transplantation
     Route: 065
  4. FLUDARABINE PHOSPHATE [Suspect]
     Active Substance: FLUDARABINE PHOSPHATE
     Indication: Bone marrow conditioning regimen
     Route: 065
  5. FLUDARABINE PHOSPHATE [Suspect]
     Active Substance: FLUDARABINE PHOSPHATE
     Indication: T-cell prolymphocytic leukaemia
  6. CYCLOPHOSPHAMIDE [Suspect]
     Active Substance: CYCLOPHOSPHAMIDE
     Indication: Allogenic stem cell transplantation
     Route: 065
  7. CYCLOPHOSPHAMIDE [Suspect]
     Active Substance: CYCLOPHOSPHAMIDE
     Indication: Bone marrow conditioning regimen
  8. CYCLOPHOSPHAMIDE [Suspect]
     Active Substance: CYCLOPHOSPHAMIDE
     Indication: T-cell prolymphocytic leukaemia
  9. CYCLOPHOSPHAMIDE [Suspect]
     Active Substance: CYCLOPHOSPHAMIDE
     Indication: T-cell prolymphocytic leukaemia
  10. CYCLOSPORINE [Suspect]
     Active Substance: CYCLOSPORINE
     Indication: Prophylaxis against graft versus host disease
     Dosage: UNK, QD (200 NG/ML/DAY FOR 100 DAYS)
     Route: 065
  11. ALEMTUZUMAB [Suspect]
     Active Substance: ALEMTUZUMAB
     Indication: T-cell prolymphocytic leukaemia
     Dosage: 3 MG, Q48H(IN THE FIRST WEEK)
     Route: 042
  12. ALEMTUZUMAB [Suspect]
     Active Substance: ALEMTUZUMAB
     Dosage: 10 MG, Q48H(IN THE FIRST WEEK)
     Route: 042
  13. ALEMTUZUMAB [Suspect]
     Active Substance: ALEMTUZUMAB
     Dosage: 30 MG, Q48H(IN THE FIRST WEEK)
     Route: 042
  14. ALEMTUZUMAB [Suspect]
     Active Substance: ALEMTUZUMAB
     Dosage: 30 MG, QW (30 MG/48 H WEEKLY)
     Route: 042
  15. CLADRIBINE [Suspect]
     Active Substance: CLADRIBINE
     Indication: T-cell prolymphocytic leukaemia
     Route: 065

REACTIONS (4)
  - T-cell prolymphocytic leukaemia [Fatal]
  - Malignant neoplasm progression [Fatal]
  - Off label use [Unknown]
  - Drug ineffective [Unknown]
